FAERS Safety Report 19230279 (Version 1)
Quarter: 2021Q2

REPORT INFORMATION
  Report Type: Spontaneous
  Country: US (occurrence: US)
  Receive Date: 20210507
  Receipt Date: 20210507
  Transmission Date: 20210717
  Serious: Yes (Death, Hospitalization)
  Sender: FDA-Public Use
  Company Number: US-CELLTRION INC.-2021US006189

PATIENT

DRUGS (8)
  1. TRASTUZUMAB (UNKNOWN) [Suspect]
     Active Substance: TRASTUZUMAB
     Indication: METASTASES TO MENINGES
  2. NAB?PACLITAXEL [Suspect]
     Active Substance: PACLITAXEL
     Indication: MICROSATELLITE INSTABILITY CANCER
  3. LAPATINIB [Suspect]
     Active Substance: LAPATINIB
     Indication: METASTASES TO MENINGES
  4. GEMCITABINE. [Suspect]
     Active Substance: GEMCITABINE
     Indication: HER2 GENE AMPLIFICATION
  5. TRASTUZUMAB (UNKNOWN) [Suspect]
     Active Substance: TRASTUZUMAB
     Indication: MICROSATELLITE INSTABILITY CANCER
     Dosage: UNK, ADDED ON CYCLE 2 WITH GEMCITABINE AND NAB?PALCITAXEL
     Route: 037
  6. GEMCITABINE. [Suspect]
     Active Substance: GEMCITABINE
     Indication: MICROSATELLITE INSTABILITY CANCER
  7. NAB?PACLITAXEL [Suspect]
     Active Substance: PACLITAXEL
     Indication: HER2 GENE AMPLIFICATION
  8. TRASTUZUMAB (UNKNOWN) [Suspect]
     Active Substance: TRASTUZUMAB
     Indication: HER2 GENE AMPLIFICATION
     Dosage: UNK, TREATMENT WITH LAPATINIB
     Route: 037

REACTIONS (6)
  - Gait disturbance [Fatal]
  - Nystagmus [Fatal]
  - Off label use [Unknown]
  - Nausea [Fatal]
  - Headache [Fatal]
  - Visual impairment [Fatal]
